FAERS Safety Report 5885270-5 (Version None)
Quarter: 2008Q3

REPORT INFORMATION
  Report Type: 
  Country: None (occurrence: None)
  Receive Date: 20080916
  Receipt Date: 20080725
  Transmission Date: 20090109
  Serious: Yes (Other)
  Sender: FDA-Public Use
  Company Number: US-PURDUE-USA_2008_0034605

PATIENT
  Sex: Male

DRUGS (4)
  1. OXYCONTIN [Suspect]
     Indication: PAIN
  2. TYLENOL (CAPLET) [Concomitant]
  3. ANTIHYPERTENSIVES [Concomitant]
  4. CORTISONE [Concomitant]

REACTIONS (12)
  - ANOREXIA [None]
  - ASTHMA [None]
  - COGNITIVE DISORDER [None]
  - DETOXIFICATION [None]
  - DRUG ABUSE [None]
  - DRUG DEPENDENCE [None]
  - GENERAL PHYSICAL HEALTH DETERIORATION [None]
  - HALLUCINATION [None]
  - PAIN [None]
  - PNEUMONIA [None]
  - SUICIDAL IDEATION [None]
  - TREMOR [None]
